FAERS Safety Report 15504430 (Version 1)
Quarter: 2018Q4

REPORT INFORMATION
  Report Type: Spontaneous
  Country: US (occurrence: US)
  Receive Date: 20181009
  Receipt Date: 20181009
  Transmission Date: 20190205
  Serious: No
  Sender: FDA-Public Use
  Company Number: None

PATIENT
  Age: 12 Year
  Sex: Male

DRUGS (4)
  1. SODIUM CHLORIDE THERMOJEC [Concomitant]
  2. ADEKS PEDIATRIC [Concomitant]
  3. PULMOZYME [Suspect]
     Active Substance: DORNASE ALFA
     Indication: CYSTIC FIBROSIS
     Route: 055
  4. TRIAMCINOLONE ACETONIIDE [Concomitant]

REACTIONS (1)
  - Hospitalisation [None]
